FAERS Safety Report 9321423 (Version 11)
Quarter: 2016Q1

REPORT INFORMATION
  Report Type: Report from Study
  Country: CA (occurrence: CA)
  Receive Date: 20130531
  Receipt Date: 20160317
  Transmission Date: 20160526
  Serious: Yes (Other)
  Sender: FDA-Public Use
  Company Number: CA-INCYTE CORPORATION-2012IN002118

PATIENT
  Age: 60 Year
  Sex: Female

DRUGS (5)
  1. JAKAFI [Suspect]
     Active Substance: RUXOLITINIB
     Dosage: 50 MG, QD
     Route: 048
  2. JAKAFI [Suspect]
     Active Substance: RUXOLITINIB
     Indication: MYELOFIBROSIS
     Dosage: 20 MG, BID
     Route: 048
     Dates: start: 20120809
  3. JAKAFI [Suspect]
     Active Substance: RUXOLITINIB
     Dosage: 25 MG, BID
     Route: 048
     Dates: start: 20130228, end: 201304
  4. JAKAFI [Suspect]
     Active Substance: RUXOLITINIB
     Dosage: 20 MG, BID
     Route: 048
  5. JAKAFI [Suspect]
     Active Substance: RUXOLITINIB
     Dosage: 20 MG, BID
     Route: 048

REACTIONS (16)
  - Haemoglobin decreased [Unknown]
  - Impaired healing [Unknown]
  - Pyrexia [Unknown]
  - Herpes zoster [Not Recovered/Not Resolved]
  - Restless legs syndrome [Unknown]
  - Pain [Recovering/Resolving]
  - Blister [Recovering/Resolving]
  - Oedema peripheral [Recovered/Resolved]
  - Poor peripheral circulation [Unknown]
  - Respiratory tract infection [Unknown]
  - Platelet count increased [Recovering/Resolving]
  - Iron deficiency [Unknown]
  - Night sweats [Not Recovered/Not Resolved]
  - Serum ferritin increased [Unknown]
  - Post herpetic neuralgia [Unknown]
  - Chills [Unknown]

NARRATIVE: CASE EVENT DATE: 20120828
